FAERS Safety Report 8156921-X (Version None)
Quarter: 2012Q1

REPORT INFORMATION
  Report Type: 
  Country: None (occurrence: None)
  Receive Date: 20120222
  Receipt Date: 20120210
  Transmission Date: 20120608
  Serious: Yes (Death)
  Sender: FDA-Public Use
  Company Number: IT-ALEXION PHARMACEUTICALS INC.-A201200257

PATIENT
  Sex: Male

DRUGS (5)
  1. ANTIBIOTICS [Concomitant]
     Indication: PNEUMONIA
  2. ANTIMYCOTICS FOR SYSTEMIC USE [Concomitant]
     Indication: PNEUMONIA
  3. PLASMA [Concomitant]
  4. CARDIAC THERAPY [Concomitant]
  5. SOLIRIS [Suspect]
     Indication: HAEMOLYTIC URAEMIC SYNDROME
     Dosage: 900 MG, QW
     Route: 042
     Dates: start: 20111121, end: 20111205

REACTIONS (2)
  - BRONCHOPULMONARY ASPERGILLOSIS [None]
  - CARDIAC FAILURE [None]
